FAERS Safety Report 19193562 (Version 1)
Quarter: 2021Q2

REPORT INFORMATION
  Report Type: Spontaneous
  Country: FR (occurrence: FR)
  Receive Date: 20210429
  Receipt Date: 20210429
  Transmission Date: 20210717
  Serious: Yes (Hospitalization)
  Sender: FDA-Public Use
  Company Number: FR-TEVA-2021-FR-1905139

PATIENT
  Age: 54 Year
  Sex: Female
  Weight: 71 kg

DRUGS (7)
  1. RISPERIDONE. [Suspect]
     Active Substance: RISPERIDONE
     Indication: TOXICITY TO VARIOUS AGENTS
     Route: 048
     Dates: start: 20210223, end: 20210223
  2. VALPROMIDE [Suspect]
     Active Substance: VALPROMIDE
     Route: 048
     Dates: start: 20210223, end: 20210223
  3. OXAZEPAM. [Suspect]
     Active Substance: OXAZEPAM
     Indication: TOXICITY TO VARIOUS AGENTS
     Route: 048
     Dates: start: 20210223, end: 20210223
  4. TRIHEXYPHENIDYLE [Suspect]
     Active Substance: TRIHEXYPHENIDYL
     Indication: TOXICITY TO VARIOUS AGENTS
     Route: 048
     Dates: start: 20210223, end: 20210223
  5. ZOPICLONE [Suspect]
     Active Substance: ZOPICLONE
     Indication: TOXICITY TO VARIOUS AGENTS
     Route: 048
     Dates: start: 20210223, end: 20210223
  6. HYDROCHLOROTHIAZIDE. [Suspect]
     Active Substance: HYDROCHLOROTHIAZIDE
     Indication: TOXICITY TO VARIOUS AGENTS
     Route: 048
     Dates: start: 20210223, end: 20210223
  7. INSULINE [Suspect]
     Active Substance: INSULIN NOS
     Indication: TOXICITY TO VARIOUS AGENTS
     Route: 058
     Dates: start: 20210223, end: 20210223

REACTIONS (6)
  - Hypoglycaemia [Recovered/Resolved]
  - Hypothermia [Recovered/Resolved]
  - Metabolic acidosis [Recovered/Resolved]
  - Bradycardia [Recovered/Resolved]
  - Hypotension [Recovered/Resolved]
  - Disturbance in attention [Recovered/Resolved]

NARRATIVE: CASE EVENT DATE: 20210223
